FAERS Safety Report 4859165-X (Version None)
Quarter: 2005Q4

REPORT INFORMATION
  Report Type: 
  Country: None (occurrence: None)
  Receive Date: 20051215
  Receipt Date: 20051130
  Transmission Date: 20060501
  Serious: Yes (Hospitalization)
  Sender: FDA-Public Use
  Company Number: DEU-2005-0001830

PATIENT
  Age: 54 Year
  Sex: Female
  Weight: 90 kg

DRUGS (16)
  1. PALLADONE [Suspect]
     Indication: CANCER PAIN
     Dosage: 8 MG, BID; ORAL
     Route: 048
  2. UNIPHYLLIN RETARD/TABLETTEN (THEOPHYLLIN) CR TABLET [Suspect]
     Indication: CANCER PAIN
     Dosage: ORAL
     Route: 048
  3. FORMOTEROL [Concomitant]
  4. ANTI-ASTHMATICS [Concomitant]
  5. TRANDOLAPRIL [Concomitant]
  6. TORSEMIDE [Concomitant]
  7. ESOMEPRAZOLE [Concomitant]
  8. CALCIUM GLUCONATE [Concomitant]
  9. VIGANTOLETTEN ^MERCK^ (COLECALCIFEROL) [Concomitant]
  10. METAMIZOLE [Concomitant]
  11. BUDESONIDE [Concomitant]
  12. PANTHENOL [Concomitant]
  13. IPRATROPIUM BROMIDE [Concomitant]
  14. IBUPROFEN ^STADA^ [Concomitant]
  15. METOCLOPRAMIDE [Concomitant]
  16. OXYGEN [Concomitant]

REACTIONS (4)
  - EPILEPSY [None]
  - FALL [None]
  - TREATMENT NONCOMPLIANCE [None]
  - UNEVALUABLE EVENT [None]
